FAERS Safety Report 7621669-4 (Version None)
Quarter: 2011Q3

REPORT INFORMATION
  Report Type: 
  Country: None (occurrence: None)
  Receive Date: 20110719
  Receipt Date: 20110711
  Transmission Date: 20111222
  Serious: Yes (Other)
  Sender: FDA-Public Use
  Company Number: US-AMGEN-KDC414293

PATIENT
  Age: 59 Year
  Sex: Female
  Weight: 104 kg

DRUGS (14)
  1. TAMOXIFEN CITRATE [Concomitant]
     Dosage: 20 MG, QD
  2. ENOXAPARIN [Concomitant]
     Dosage: 150 MG, QD
     Route: 058
     Dates: start: 20091101
  3. CELEXA [Concomitant]
     Dosage: 20 MG, QD
  4. TRAZODONE [Concomitant]
     Dosage: 100 MG, QD
  5. PANTOPRAZOLE SODIUM [Concomitant]
     Dosage: 40 MG, QD
  6. ENALAPRIL MALEATE [Concomitant]
     Dosage: 5 MG, QD
  7. WARFARIN SODIUM [Concomitant]
     Dosage: UNK UNK, UNK
     Route: 048
     Dates: end: 20091130
  8. CALCIUM CARBONATE [Concomitant]
     Dosage: UNK UNK, QD
     Route: 048
  9. ANASTROZOLE [Concomitant]
     Dosage: 250 MG, QMO
     Route: 030
     Dates: start: 20091101, end: 20100222
  10. FERRIC CITRATE [Concomitant]
  11. DOCETAXEL [Concomitant]
     Dosage: UNK UNK, UNK
     Dates: start: 20090701, end: 20091102
  12. DENOSUMAB [Suspect]
     Indication: METASTASES TO BONE
     Dosage: 120 MG, Q4WK
     Route: 058
     Dates: start: 20090810, end: 20091005
  13. ZOLEDRONIC ACID [Suspect]
     Dosage: UNK UNK, UNK
     Dates: start: 20061229, end: 20090713
  14. BEVACIZUMAB [Suspect]
     Dosage: UNK UNK, UNK
     Dates: start: 20090701, end: 20091102

REACTIONS (1)
  - OSTEONECROSIS OF JAW [None]
